FAERS Safety Report 4517280-4 (Version None)
Quarter: 2004Q4

REPORT INFORMATION
  Report Type: 
  Country: None (occurrence: None)
  Receive Date: 20041008
  Receipt Date: 20040803
  Transmission Date: 20050328
  Serious: No
  Sender: FDA-Public Use
  Company Number: 2004S1000164

PATIENT
  Age: 50 Year
  Sex: Male
  Weight: 96.8 kg

DRUGS (11)
  1. CUBICIN [Suspect]
     Indication: STAPHYLOCOCCAL BACTERAEMIA
     Dosage: 600 MG; Q24H; IV
     Route: 042
     Dates: start: 20040703, end: 20040801
  2. ATORVASTATIN [Concomitant]
  3. AMIODARONE HCL [Concomitant]
  4. CLONAZEPAM [Concomitant]
  5. METOPROLOL [Concomitant]
  6. SERTRALINE HCL [Concomitant]
  7. PANTOPRAZOLE [Concomitant]
  8. WARFARIN SODIUM [Concomitant]
  9. HYDROXYZINE [Concomitant]
  10. IRON [Concomitant]
  11. VITAMIN B COMPLEX CAP [Concomitant]

REACTIONS (1)
  - BLOOD CREATINE PHOSPHOKINASE INCREASED [None]
